FAERS Safety Report 11857993 (Version 1)
Quarter: 2015Q4

REPORT INFORMATION
  Report Type: Spontaneous
  Country: JP (occurrence: JP)
  Receive Date: 20151222
  Receipt Date: 20151222
  Transmission Date: 20160305
  Serious: Yes (Other)
  Sender: FDA-Public Use
  Company Number: JP-ACTAVIS-2015-18165

PATIENT
  Age: 73 Year
  Sex: Male

DRUGS (3)
  1. BETAMETHASONE (UNKNOWN) [Suspect]
     Active Substance: BETAMETHASONE
     Indication: CACHEXIA
     Dosage: 1 MG, DAILY
     Route: 065
  2. GLIMEPIRIDE. [Concomitant]
     Active Substance: GLIMEPIRIDE
     Indication: DIABETES MELLITUS
     Dosage: 1 MG, DAILY
     Route: 065
  3. BETAMETHASONE (UNKNOWN) [Suspect]
     Active Substance: BETAMETHASONE
     Indication: TUMOUR ASSOCIATED FEVER
     Dosage: 1.5 MG, DAILY
     Route: 065

REACTIONS (2)
  - Hyperglycaemia [Recovering/Resolving]
  - Sleep disorder [Recovered/Resolved]
